FAERS Safety Report 11121174 (Version 1)
Quarter: 2015Q2

REPORT INFORMATION
  Report Type: Spontaneous
  Country: MA (occurrence: None)
  Receive Date: 20150515
  Receipt Date: 20150515
  Transmission Date: 20150821
  Serious: Yes (Other)
  Sender: FDA-Public Use
  Company Number: MA-ZYDUS-007982

PATIENT
  Age: 60 Year

DRUGS (2)
  1. PEGINTERFERON ALPHA [Suspect]
     Active Substance: PEGINTERFERON ALFA-2A OR PEGINTERFERON ALFA-2B
     Indication: HEPATITIS C
  2. RIBAVIRIN (RIBAVIRIN) [Suspect]
     Active Substance: RIBAVIRIN
     Indication: HEPATITIS C

REACTIONS (5)
  - Nephrotic syndrome [None]
  - Lupus nephritis [None]
  - Normochromic normocytic anaemia [None]
  - Anaemia macrocytic [None]
  - Lymphopenia [None]
